FAERS Safety Report 25741261 (Version 1)
Quarter: 2025Q3

REPORT INFORMATION
  Report Type: Spontaneous
  Country: CA (occurrence: CA)
  Receive Date: 20250829
  Receipt Date: 20250829
  Transmission Date: 20251021
  Serious: Yes (Other)
  Sender: NOVO NORDISK
  Company Number: CA-NOVOPROD-1506366

PATIENT
  Weight: 71.2 kg

DRUGS (1)
  1. OZEMPIC [Suspect]
     Active Substance: SEMAGLUTIDE
     Indication: Diabetes mellitus
     Dates: start: 20250527

REACTIONS (5)
  - Renal impairment [Unknown]
  - White blood cell count increased [Unknown]
  - Bacterial infection [Unknown]
  - Nausea [Recovering/Resolving]
  - Vomiting [Unknown]
